FAERS Safety Report 10572774 (Version 1)
Quarter: 2014Q4

REPORT INFORMATION
  Report Type: Spontaneous
  Country: US (occurrence: None)
  Receive Date: 20141107
  Receipt Date: 20141107
  Transmission Date: 20150529
  Serious: Yes (Other)
  Sender: FDA-Public Use
  Company Number: None

PATIENT
  Age: 62 Year
  Sex: Female

DRUGS (1)
  1. TARGRETIN [Suspect]
     Active Substance: BEXAROTENE
     Indication: SKIN CANCER
     Route: 048
     Dates: start: 20141020, end: 20141106

REACTIONS (4)
  - Urticaria [None]
  - Ulcer [None]
  - Swelling [None]
  - Pruritus [None]

NARRATIVE: CASE EVENT DATE: 20141020
